FAERS Safety Report 24135421 (Version 1)
Quarter: 2024Q3

REPORT INFORMATION
  Report Type: Spontaneous
  Country: FR (occurrence: None)
  Receive Date: 20240725
  Receipt Date: 20240725
  Transmission Date: 20241017
  Serious: Yes (Hospitalization)
  Sender: ASTRAZENECA
  Company Number: 2024A167799

PATIENT
  Age: 78 Year
  Sex: Female

DRUGS (31)
  1. OMEPRAZOLE [Suspect]
     Active Substance: OMEPRAZOLE
     Dosage: IN THE MORNING
     Dates: start: 2023
  2. PREDNISONE [Suspect]
     Active Substance: PREDNISONE
     Indication: Rheumatoid arthritis
     Dosage: 1 MG 3 TABLETS IN THE MORNING
     Dates: start: 2004
  3. GANCICLOVIR [Suspect]
     Active Substance: GANCICLOVIR
     Indication: Cytomegalovirus chorioretinitis
     Dates: start: 20230929, end: 20231004
  4. VALGANCICLOVIR [Suspect]
     Active Substance: VALGANCICLOVIR
     Indication: Cytomegalovirus chorioretinitis
     Dates: start: 20230929, end: 20231004
  5. TOCILIZUMAB [Suspect]
     Active Substance: TOCILIZUMAB
     Indication: Rheumatoid arthritis
     Dates: start: 202301, end: 2023
  6. ARAVA [Concomitant]
     Active Substance: LEFLUNOMIDE
  7. FILGOTINIB [Concomitant]
     Active Substance: FILGOTINIB
  8. ABATACEPT [Concomitant]
     Active Substance: ABATACEPT
  9. VERAPAMIL [Concomitant]
     Active Substance: VERAPAMIL HYDROCHLORIDE
  10. FOLIC ACID [Concomitant]
     Active Substance: FOLIC ACID
  11. CALCIUM CARBONATE\CHOLECALCIFEROL [Concomitant]
     Active Substance: CALCIUM CARBONATE\CHOLECALCIFEROL
  12. ACETAMINOPHEN [Concomitant]
     Active Substance: ACETAMINOPHEN
  13. ROSUVASTATIN [Concomitant]
     Active Substance: ROSUVASTATIN
  14. NITROGLYCERIN [Concomitant]
     Active Substance: NITROGLYCERIN
  15. TIOTROPIUM [Concomitant]
     Active Substance: TIOTROPIUM
  16. MONTELUKAST [Concomitant]
     Active Substance: MONTELUKAST SODIUM
  17. CETIRIZINE [Concomitant]
     Active Substance: CETIRIZINE HYDROCHLORIDE
  18. PILOCARPINE CHLORHYDRATE [Concomitant]
  19. APIXABAN [Concomitant]
     Active Substance: APIXABAN
  20. CORN OIL, OXIDIZED [Concomitant]
     Active Substance: CORN OIL, OXIDIZED
  21. INNOVAIR [Concomitant]
     Active Substance: BECLOMETHASONE DIPROPIONATE\FORMOTEROL
     Dosage: 100/6: 2 INHALATIONS MORNING AND EVENING
  22. CLINDAMYCIN [Concomitant]
     Active Substance: CLINDAMYCIN
  23. MALOCIDE [Concomitant]
  24. ZITHROMAX [Concomitant]
     Active Substance: AZITHROMYCIN DIHYDRATE
  25. LEUCOVORIN CALCIUM [Concomitant]
     Active Substance: LEUCOVORIN CALCIUM
  26. DEXAMETHASONE [Concomitant]
     Active Substance: DEXAMETHASONE
  27. VALACYCLOVIR HYDROCHLORIDE [Concomitant]
     Active Substance: VALACYCLOVIR HYDROCHLORIDE
     Indication: Cytomegalovirus chorioretinitis
  28. BACTRIM [Concomitant]
     Active Substance: SULFAMETHOXAZOLE\TRIMETHOPRIM
     Indication: Prophylaxis
  29. BACTRIM [Concomitant]
     Active Substance: SULFAMETHOXAZOLE\TRIMETHOPRIM
     Indication: Eye infection toxoplasmal
  30. CELESTENE [Concomitant]
  31. METHOTREXATE [Concomitant]
     Active Substance: METHOTREXATE

REACTIONS (1)
  - Alveolar proteinosis [Not Recovered/Not Resolved]

NARRATIVE: CASE EVENT DATE: 20231101
